FAERS Safety Report 17841873 (Version 1)
Quarter: 2020Q2

REPORT INFORMATION
  Report Type: Spontaneous
  Country: FR (occurrence: FR)
  Receive Date: 20200529
  Receipt Date: 20200529
  Transmission Date: 20200714
  Serious: Yes (Hospitalization)
  Sender: FDA-Public Use
  Company Number: FR-NOVOPROD-729452

PATIENT
  Age: 41 Year
  Sex: Male
  Weight: 65 kg

DRUGS (3)
  1. LAROXYL [Suspect]
     Active Substance: AMITRIPTYLINE HYDROCHLORIDE
     Indication: INTENTIONAL OVERDOSE
     Dosage: 450 MG, QD
     Route: 048
     Dates: start: 20200319, end: 20200319
  2. ACTRAPID [Suspect]
     Active Substance: INSULIN HUMAN
     Indication: INTENTIONAL OVERDOSE
     Dosage: 100 IU
     Route: 058
     Dates: start: 20200319, end: 20200319
  3. SERESTA [Suspect]
     Active Substance: OXAZEPAM
     Indication: INTENTIONAL OVERDOSE
     Dosage: 120 MG
     Route: 048
     Dates: start: 20200319, end: 20200319

REACTIONS (4)
  - Somnolence [Recovered/Resolved]
  - Poisoning deliberate [Recovered/Resolved]
  - Hypoglycaemia [Recovered/Resolved]
  - Tachycardia [Recovered/Resolved]

NARRATIVE: CASE EVENT DATE: 20200319
